FAERS Safety Report 22122065 (Version 1)
Quarter: 2023Q1

REPORT INFORMATION
  Report Type: Spontaneous
  Country: UA (occurrence: UA)
  Receive Date: 20230321
  Receipt Date: 20230321
  Transmission Date: 20230418
  Serious: Yes (Death, Other)
  Sender: FDA-Public Use
  Company Number: UA-MYLANLABS-2023M1027063

PATIENT
  Age: 73 Year
  Sex: Male

DRUGS (1)
  1. PREGABALIN [Suspect]
     Active Substance: PREGABALIN
     Indication: Polyneuropathy
     Dosage: 300 MILLIGRAM, QD
     Route: 065
     Dates: start: 202007

REACTIONS (5)
  - Crohn^s disease [Fatal]
  - Mesenteric vein thrombosis [Unknown]
  - Body temperature increased [Recovered/Resolved]
  - Mouth ulceration [Recovering/Resolving]
  - Rash [Recovering/Resolving]
